FAERS Safety Report 8336024-1 (Version None)
Quarter: 2012Q2

REPORT INFORMATION
  Report Type: 
  Country: None (occurrence: None)
  Receive Date: 20120501
  Receipt Date: 20120501
  Transmission Date: 20120825
  Serious: Yes (Hospitalization)
  Sender: FDA-Public Use
  Company Number: None

PATIENT
  Age: 84 Year
  Sex: Female
  Weight: 61.6 kg

DRUGS (10)
  1. NEXIUM [Concomitant]
  2. NAMENDA [Concomitant]
  3. ZYPREXA [Suspect]
     Indication: MANIA
     Dosage: 5MG AT BEDTIME PO CHRONIC; 1 TABLET? Q4HR PRN PO CHRONIC
     Route: 048
  4. ZOFRAN [Concomitant]
  5. COLACE [Concomitant]
  6. MIRALAX [Concomitant]
  7. GUAIFENESIN [Concomitant]
  8. CELEXA [Concomitant]
  9. SYNTHROID [Concomitant]
  10. CLARITIN [Concomitant]

REACTIONS (2)
  - CONFUSIONAL STATE [None]
  - HYPOPHAGIA [None]
